FAERS Safety Report 4749270-0 (Version None)
Quarter: 2005Q3

REPORT INFORMATION
  Report Type: 
  Country: None (occurrence: None)
  Receive Date: 20050811
  Receipt Date: 20050726
  Transmission Date: 20060218
  Serious: Yes (Death, Other)
  Sender: FDA-Public Use
  Company Number: US145313

PATIENT
  Sex: Female

DRUGS (1)
  1. ETANERCEPT (ETANERCEPT) [Suspect]

REACTIONS (3)
  - DEMENTIA [None]
  - DISEASE PROGRESSION [None]
  - RHEUMATOID VASCULITIS [None]
